FAERS Safety Report 8591129-5 (Version None)
Quarter: 2012Q3

REPORT INFORMATION
  Report Type: 
  Country: None (occurrence: None)
  Receive Date: 20120813
  Receipt Date: 20120803
  Transmission Date: 20120928
  Serious: Yes (Death)
  Sender: FDA-Public Use
  Company Number: BR-GILEAD-2012-0059608

PATIENT
  Sex: Female

DRUGS (9)
  1. AZATHIOPRINE SODIUM [Suspect]
  2. LETAIRIS [Suspect]
     Indication: PRODUCT USED FOR UNKNOWN INDICATION
     Dosage: UNK
     Route: 048
     Dates: start: 20051025
  3. OMEPRAZOLE [Suspect]
  4. LEVOTHYROXINE SODIUM [Suspect]
  5. CALCIUM [Suspect]
  6. PREDNISONE TAB [Suspect]
  7. FLUOXETINE HCL [Suspect]
  8. LISADOR [Suspect]
  9. CHLOROQUINE PHOSPHATE [Suspect]

REACTIONS (2)
  - OESOPHAGEAL CARCINOMA [None]
  - SYSTEMIC LUPUS ERYTHEMATOSUS [None]
